FAERS Safety Report 13883519 (Version 1)
Quarter: 2017Q3

REPORT INFORMATION
  Report Type: Spontaneous
  Country: US (occurrence: US)
  Receive Date: 20170819
  Receipt Date: 20170819
  Transmission Date: 20171127
  Serious: No
  Sender: FDA-Public Use
  Company Number: US-HETERO CORPORATE-2017HINSPO0347

PATIENT
  Sex: Male
  Weight: 72.11 kg

DRUGS (1)
  1. FINASTERIDE. [Suspect]
     Active Substance: FINASTERIDE
     Indication: POLLAKIURIA
     Dosage: UNK
     Route: 065
     Dates: start: 2017

REACTIONS (2)
  - Drug ineffective [Unknown]
  - Urine output increased [Not Recovered/Not Resolved]
